FAERS Safety Report 8624627-6 (Version None)
Quarter: 2012Q3

REPORT INFORMATION
  Report Type: 
  Country: None (occurrence: None)
  Receive Date: 20120827
  Receipt Date: 20120815
  Transmission Date: 20120928
  Serious: Yes (Other)
  Sender: FDA-Public Use
  Company Number: US-BAYER-2012-083333

PATIENT

DRUGS (2)
  1. CELEBREX [Interacting]
  2. BETAPACE [Suspect]

REACTIONS (1)
  - DRUG INTERACTION [None]
